FAERS Safety Report 9918278 (Version 1)
Quarter: 2014Q1

REPORT INFORMATION
  Report Type: Spontaneous
  Country: US (occurrence: US)
  Receive Date: 20140224
  Receipt Date: 20140224
  Transmission Date: 20141002
  Serious: Yes (Other)
  Sender: FDA-Public Use
  Company Number: US-ROCHE-1250172

PATIENT
  Age: 66 Year
  Sex: Male

DRUGS (3)
  1. LUCENTIS [Suspect]
     Indication: DIABETIC RETINAL OEDEMA
     Route: 031
  2. AVASTIN [Suspect]
     Indication: DIABETIC RETINAL OEDEMA
     Route: 031
  3. KENALOG (AUSTRALIA) [Concomitant]
     Indication: DIABETIC RETINAL OEDEMA
     Route: 031

REACTIONS (6)
  - Retinal oedema [Not Recovered/Not Resolved]
  - Ocular hyperaemia [Not Recovered/Not Resolved]
  - Drug ineffective [Unknown]
  - Injection site pain [Not Recovered/Not Resolved]
  - Visual impairment [Recovered/Resolved]
  - Eye contusion [Unknown]
